FAERS Safety Report 4306854-1 (Version None)
Quarter: 2004Q1

REPORT INFORMATION
  Report Type: 
  Country: None (occurrence: None)
  Receive Date: 20040225
  Receipt Date: 20040206
  Transmission Date: 20041129
  Serious: Yes (Hospitalization)
  Sender: FDA-Public Use
  Company Number: FR_040203566

PATIENT
  Sex: Male

DRUGS (2)
  1. ZYPREXA [Suspect]
     Dates: start: 20030302, end: 20031103
  2. TRANXENE [Concomitant]

REACTIONS (2)
  - DRUG WITHDRAWAL SYNDROME NEONATAL [None]
  - MATERNAL DRUGS AFFECTING FOETUS [None]
